FAERS Safety Report 23367496 (Version 1)
Quarter: 2024Q1

REPORT INFORMATION
  Report Type: Spontaneous
  Country: FR (occurrence: FR)
  Receive Date: 20240104
  Receipt Date: 20240104
  Transmission Date: 20240410
  Serious: Yes (Hospitalization, Other)
  Sender: FDA-Public Use
  Company Number: None

PATIENT

DRUGS (1)
  1. SUBUTEX [Suspect]
     Active Substance: BUPRENORPHINE HYDROCHLORIDE
     Indication: Product used for unknown indication
     Dosage: 6 TO 8 MILLIGRAMS, QD
     Route: 042
     Dates: start: 201806

REACTIONS (3)
  - Product use issue [Recovered/Resolved]
  - Injection site infection [Recovered/Resolved]
  - Drug use disorder [Not Recovered/Not Resolved]
